FAERS Safety Report 21315277 (Version 1)
Quarter: 2022Q3

REPORT INFORMATION
  Report Type: Spontaneous
  Country: US (occurrence: None)
  Receive Date: 20220909
  Receipt Date: 20220909
  Transmission Date: 20221026
  Serious: No
  Sender: FDA-Public Use
  Company Number: US-ARIS GLOBAL-202111-2081

PATIENT
  Age: 72 Year
  Sex: Female

DRUGS (7)
  1. OXERVATE [Suspect]
     Active Substance: CENEGERMIN-BKBJ
     Indication: Neurotrophic keratopathy
     Route: 047
     Dates: start: 20211108
  2. POLYTRIM [Concomitant]
     Active Substance: POLYMYXIN B SULFATE\TRIMETHOPRIM SULFATE
     Indication: Persistent corneal epithelial defect
     Dosage: 10000-1/ML
     Route: 061
     Dates: end: 20211118
  3. RESTASIS [Concomitant]
     Active Substance: CYCLOSPORINE
     Indication: Dry eye
     Route: 061
     Dates: start: 20210714
  4. COMBIGAN [Concomitant]
     Active Substance: BRIMONIDINE TARTRATE\TIMOLOL MALEATE
     Indication: Glaucoma
     Dosage: 0.2%-0.5%
  5. DUREZOL [Concomitant]
     Active Substance: DIFLUPREDNATE
     Indication: Persistent corneal epithelial defect
     Dosage: DAILY
     Route: 061
     Dates: start: 20210714
  6. MOXIFLOXACIN [Concomitant]
     Active Substance: MOXIFLOXACIN
     Indication: Persistent corneal epithelial defect
     Route: 061
     Dates: start: 20211118
  7. REFRESH CELLUVISC [Concomitant]
     Active Substance: CARBOXYMETHYLCELLULOSE SODIUM
     Indication: Persistent corneal epithelial defect
     Route: 061
     Dates: start: 20210714

REACTIONS (3)
  - Eyelid pain [Unknown]
  - Corneal deposits [Recovering/Resolving]
  - Persistent corneal epithelial defect [Unknown]

NARRATIVE: CASE EVENT DATE: 20211208
